FAERS Safety Report 6291168-3 (Version None)
Quarter: 2009Q3

REPORT INFORMATION
  Report Type: 
  Country: None (occurrence: None)
  Receive Date: 20090730
  Receipt Date: 20090723
  Transmission Date: 20100115
  Serious: Yes (Other)
  Sender: FDA-Public Use
  Company Number: B0585554A

PATIENT

DRUGS (2)
  1. COMBIVIR [Suspect]
     Dates: end: 20080101
  2. PROTEASE INHIBITOR [Concomitant]
     Dates: end: 20080101

REACTIONS (3)
  - ANAEMIA [None]
  - DRUG EXPOSURE DURING PREGNANCY [None]
  - PREMATURE BABY [None]
